FAERS Safety Report 19881078 (Version 1)
Quarter: 2021Q3

REPORT INFORMATION
  Report Type: Spontaneous
  Country: FR (occurrence: FR)
  Receive Date: 20210924
  Receipt Date: 20210924
  Transmission Date: 20211014
  Serious: Yes (Other)
  Sender: FDA-Public Use
  Company Number: FR-TEVA-2021-FR-1956524

PATIENT
  Age: 63 Year
  Sex: Male
  Weight: 67 kg

DRUGS (5)
  1. ONDANSETRON ARROW 8 MG, COMPRIME ORODISPERSIBLE [Suspect]
     Active Substance: ONDANSETRON
     Indication: ANTIEMETIC SUPPORTIVE CARE
     Route: 048
     Dates: start: 20210716, end: 20210716
  2. KEPPRA [Concomitant]
     Active Substance: LEVETIRACETAM
     Dosage: 1000 MG
     Route: 048
     Dates: start: 20210526, end: 20210723
  3. ACETATE DE PREDNISOLONE [Suspect]
     Active Substance: PREDNISOLONE ACETATE
     Indication: CHEMOTHERAPY SIDE EFFECT PROPHYLAXIS
     Route: 048
     Dates: start: 20210716, end: 20210716
  4. APREPITANT. [Suspect]
     Active Substance: APREPITANT
     Indication: NAUSEA
     Dosage: 1 DF
     Route: 048
     Dates: start: 20210716, end: 202107
  5. BELUSTINE 40 MG, GELULE [Suspect]
     Active Substance: LOMUSTINE
     Indication: ANAPLASTIC OLIGODENDROGLIOMA
     Dosage: 1600MG 1 TAKE
     Route: 048
     Dates: start: 20210716, end: 20210716

REACTIONS (2)
  - Rash macular [Not Recovered/Not Resolved]
  - Pruritus [Recovering/Resolving]

NARRATIVE: CASE EVENT DATE: 20210720
